FAERS Safety Report 6444943-6 (Version None)
Quarter: 2009Q4

REPORT INFORMATION
  Report Type: 
  Country: None (occurrence: None)
  Receive Date: 20091117
  Receipt Date: 20091117
  Transmission Date: 20100525
  Serious: Yes (Hospitalization, Other)
  Sender: FDA-Public Use
  Company Number: None

PATIENT
  Age: 31 Year
  Sex: Female
  Weight: 57.1532 kg

DRUGS (2)
  1. LEVAQUIN [Suspect]
     Indication: DIVERTICULITIS
     Dosage: IV DRIP
     Route: 041
     Dates: start: 20081211, end: 20081212
  2. LEVAQUIN [Suspect]
     Indication: INSOMNIA
     Dosage: IV DRIP
     Route: 041
     Dates: start: 20081211, end: 20081212

REACTIONS (7)
  - ABDOMINAL PAIN [None]
  - BACK PAIN [None]
  - GASTROINTESTINAL PAIN [None]
  - MUSCLE CONTRACTIONS INVOLUNTARY [None]
  - MUSCLE SPASMS [None]
  - MYALGIA [None]
  - NEUROPATHY PERIPHERAL [None]
